FAERS Safety Report 7398078-9 (Version None)
Quarter: 2011Q2

REPORT INFORMATION
  Report Type: 
  Country: None (occurrence: None)
  Receive Date: 20110406
  Receipt Date: 20110328
  Transmission Date: 20111010
  Serious: Yes (Death, Hospitalization, Other)
  Sender: FDA-Public Use
  Company Number: US-ELI_LILLY_AND_COMPANY-US201101006195

PATIENT
  Sex: Male
  Weight: 61.678 kg

DRUGS (11)
  1. ALIMTA [Suspect]
     Indication: LUNG CANCER METASTATIC
     Dosage: 830 MG, UNKNOWN
     Route: 065
     Dates: start: 20101124
  2. CYCLOSPORINE [Concomitant]
     Dosage: UNK, UNKNOWN
     Route: 065
     Dates: start: 20100310, end: 20100819
  3. SOLIVITO [Concomitant]
     Dosage: UNK, UNKNOWN
     Route: 065
     Dates: start: 20101006
  4. SOLIVITO [Concomitant]
     Dosage: UNK, UNKNOWN
     Route: 065
     Dates: start: 20101013
  5. ANTITHYMOCYTE IMMUNOGLOBULIN [Concomitant]
     Dosage: UNK, UNKNOWN
     Route: 065
     Dates: start: 20100626, end: 20100629
  6. SOLIVITO [Concomitant]
     Dosage: UNK, UNKNOWN
     Route: 065
     Dates: start: 20101020
  7. TARIVID                                 /BEL/ [Concomitant]
     Dosage: UNK, UNKNOWN
     Route: 065
     Dates: start: 20101018, end: 20101111
  8. SOLIVITO [Concomitant]
     Dosage: UNK, UNKNOWN
     Route: 065
     Dates: start: 20101110
  9. SOLIVITO [Concomitant]
     Dosage: UNK, UNKNOWN
     Route: 065
     Dates: start: 20100928
  10. SOLIVITO [Concomitant]
     Dosage: UNK, UNKNOWN
     Route: 065
     Dates: start: 20101027
  11. VITAMIN B-12 [Concomitant]
     Dosage: 1000 UG, UNKNOWN
     Dates: start: 20101119

REACTIONS (5)
  - CANDIDA SEPSIS [None]
  - STAPHYLOCOCCAL BACTERAEMIA [None]
  - INFECTION [None]
  - NEOPLASM MALIGNANT [None]
  - FEBRILE NEUTROPENIA [None]
